FAERS Safety Report 16205896 (Version 2)
Quarter: 2019Q2

REPORT INFORMATION
  Report Type: Spontaneous
  Country: GB (occurrence: GB)
  Receive Date: 20190417
  Receipt Date: 20190523
  Transmission Date: 20190711
  Serious: Yes (Life-Threatening, Hospitalization, Congenital Anomaly, Other)
  Sender: FDA-Public Use
  Company Number: GB-AUROBINDO-AUR-APL-2014-13350

PATIENT

DRUGS (9)
  1. PARACETAMOL [Suspect]
     Active Substance: ACETAMINOPHEN
     Indication: PELVIC PAIN
     Dosage: UNK, UPTO FOURTIMES A DAY
     Route: 064
  2. COCODAMOL [Suspect]
     Active Substance: ACETAMINOPHEN\CODEINE PHOSPHATE
     Indication: PELVIC PAIN
  3. FLUOXETINE [Concomitant]
     Active Substance: FLUOXETINE HYDROCHLORIDE
     Indication: PRODUCT USED FOR UNKNOWN INDICATION
     Dosage: UNK
     Route: 064
  4. METRONIDAZOLE. [Concomitant]
     Active Substance: METRONIDAZOLE
     Indication: PYELONEPHRITIS
     Dosage: UNK
     Route: 064
  5. MORPHINE HYDROCHLORIDE [Concomitant]
     Active Substance: MORPHINE HYDROCHLORIDE
     Indication: PRODUCT USED FOR UNKNOWN INDICATION
     Dosage: UNK
     Route: 064
  6. ENOXAPARIN [Concomitant]
     Active Substance: ENOXAPARIN
     Indication: PRODUCT USED FOR UNKNOWN INDICATION
     Dosage: UNK
     Route: 064
  7. PARACETAMOL [Suspect]
     Active Substance: ACETAMINOPHEN
     Indication: BACK DISORDER
  8. CEFRADINE [Concomitant]
     Active Substance: CEPHRADINE
     Indication: PYELONEPHRITIS
     Dosage: UNK
     Route: 064
  9. COCODAMOL [Suspect]
     Active Substance: ACETAMINOPHEN\CODEINE PHOSPHATE
     Indication: BACK DISORDER
     Dosage: UNK UNK, FOUR TIMES/DAY
     Route: 064

REACTIONS (20)
  - Gait inability [Unknown]
  - Foetal exposure during pregnancy [Unknown]
  - Premature baby [Unknown]
  - Aphasia [Unknown]
  - Overdose [Unknown]
  - Heart rate irregular [Unknown]
  - Jaundice neonatal [Recovered/Resolved]
  - Malaise [Unknown]
  - Foetal arrhythmia [Recovered/Resolved]
  - Foetal monitoring abnormal [Unknown]
  - Incubator therapy [Unknown]
  - Hepatic function abnormal [Unknown]
  - Developmental delay [Not Recovered/Not Resolved]
  - Drug dependence [Unknown]
  - Respiratory distress [Recovered/Resolved]
  - Dependence [Recovered/Resolved]
  - Hepatotoxicity [Recovered/Resolved]
  - Tremor [Unknown]
  - Liver function test abnormal [Recovered/Resolved]
  - Drug withdrawal syndrome neonatal [Recovered/Resolved]
